FAERS Safety Report 10419358 (Version 1)
Quarter: 2014Q2

REPORT INFORMATION
  Report Type: Spontaneous
  Country: US (occurrence: None)
  Receive Date: 20140627
  Receipt Date: 20140627
  Transmission Date: 20141212
  Serious: Yes (Other)
  Sender: FDA-Public Use
  Company Number: PHEH2013US017985

PATIENT
  Age: 64 Year
  Sex: Female

DRUGS (6)
  1. DIOVAN HCT (VALSARTAN, HYDROCHLOROTHIAZIDE) UNKNOWN [Suspect]
     Indication: HYPERTENSION
  2. LABETALOL (LABETALOL) [Suspect]
  3. CLONIDINE HYDROCHLORIDE [Suspect]
  4. LOSARTAN (LOSARTAN) [Suspect]
  5. SYNTHROID (LEVOTHYROXINE SODIUM) [Concomitant]
  6. LOVASTATIN [Concomitant]

REACTIONS (6)
  - Blood pressure increased [None]
  - Headache [None]
  - Dizziness [None]
  - Abasia [None]
  - Visual impairment [None]
  - Drug ineffective [None]
